FAERS Safety Report 10735914 (Version 1)
Quarter: 2015Q1

REPORT INFORMATION
  Report Type: Spontaneous
  Country: US (occurrence: None)
  Receive Date: 20150121
  Receipt Date: 20150121
  Transmission Date: 20150721
  Serious: Yes (Death)
  Sender: FDA-Public Use
  Company Number: 2015COV00009

PATIENT
  Age: 73 Year
  Sex: Female

DRUGS (1)
  1. DIGOXIN (DIGOXIN) UNKNOWN [Suspect]
     Active Substance: DIGOXIN
     Route: 048

REACTIONS (2)
  - Death [None]
  - Adverse drug reaction [None]
